FAERS Safety Report 9772329 (Version 1)
Quarter: 2013Q4

REPORT INFORMATION
  Report Type: Spontaneous
  Country: US (occurrence: US)
  Receive Date: 20131219
  Receipt Date: 20131219
  Transmission Date: 20140711
  Serious: No
  Sender: FDA-Public Use
  Company Number: US-009507513-1312USA007943

PATIENT
  Sex: Male

DRUGS (1)
  1. JANUMET XR [Suspect]
     Dosage: STRENGTH:100/1000
     Route: 048

REACTIONS (1)
  - Blood glucose abnormal [Unknown]
